FAERS Safety Report 14631503 (Version 1)
Quarter: 2018Q1

REPORT INFORMATION
  Report Type: Spontaneous
  Country: DE (occurrence: DE)
  Receive Date: 20180313
  Receipt Date: 20180313
  Transmission Date: 20180509
  Serious: Yes (Death)
  Sender: FDA-Public Use
  Company Number: PHHY2018DE035661

PATIENT
  Age: 48 Year
  Sex: Female

DRUGS (5)
  1. OXALIPLATIN. [Suspect]
     Active Substance: OXALIPLATIN
     Indication: APPENDIX CANCER
     Dosage: UNK
     Route: 042
  2. CALCIUMFOLINATE [Concomitant]
     Active Substance: LEUCOVORIN
     Dosage: 20 MG/M2, UNK
     Route: 042
  3. 5-FU [Suspect]
     Active Substance: FLUOROURACIL
     Indication: APPENDIX CANCER
     Route: 042
  4. OXALIPLATIN. [Suspect]
     Active Substance: OXALIPLATIN
     Dosage: 300 MG/M2, UNK
     Route: 042
  5. 5-FU [Suspect]
     Active Substance: FLUOROURACIL
     Dosage: 400 MG/M2, UNK
     Route: 042

REACTIONS (4)
  - Fatigue [Fatal]
  - Dyspnoea [Fatal]
  - Pulmonary hypertension [Fatal]
  - Respiratory failure [Fatal]
